FAERS Safety Report 13270202 (Version 2)
Quarter: 2017Q1

REPORT INFORMATION
  Report Type: Spontaneous
  Country: US (occurrence: US)
  Receive Date: 20170224
  Receipt Date: 20170314
  Transmission Date: 20170428
  Serious: No
  Sender: FDA-Public Use
  Company Number: US-SHIRE-US201702335

PATIENT
  Age: 74 Year
  Sex: Male

DRUGS (1)
  1. XIIDRA [Suspect]
     Active Substance: LIFITEGRAST
     Indication: PRODUCT USED FOR UNKNOWN INDICATION
     Dosage: UNK, UNKNOWN
     Route: 047
     Dates: start: 20170131

REACTIONS (4)
  - Therapeutic response unexpected [Unknown]
  - Wrong technique in product usage process [Unknown]
  - Product quality issue [Not Recovered/Not Resolved]
  - Product quality issue [Unknown]

NARRATIVE: CASE EVENT DATE: 201701
